FAERS Safety Report 19687415 (Version 2)
Quarter: 2021Q3

REPORT INFORMATION
  Report Type: Spontaneous
  Country: US (occurrence: US)
  Receive Date: 20210811
  Receipt Date: 20210924
  Transmission Date: 20211014
  Serious: No
  Sender: FDA-Public Use
  Company Number: US-PFIZER INC-2021818248

PATIENT
  Age: 66 Year
  Sex: Female
  Weight: 52.15 kg

DRUGS (2)
  1. PREMARIN [Suspect]
     Active Substance: ESTROGENS, CONJUGATED
     Dosage: UNK
  2. PREMPHASE [Suspect]
     Active Substance: ESTROGENS, CONJUGATED\MEDROXYPROGESTERONE ACETATE
     Dosage: UNK

REACTIONS (4)
  - Drug ineffective [Unknown]
  - Product prescribing issue [Unknown]
  - Agitation [Unknown]
  - Product substitution issue [Unknown]
